FAERS Safety Report 11159076 (Version 2)
Quarter: 2015Q3

REPORT INFORMATION
  Report Type: Spontaneous
  Country: US (occurrence: None)
  Receive Date: 20150526
  Receipt Date: 20150706
  Transmission Date: 20151125
  Serious: Yes (Hospitalization, Other)
  Sender: FDA-Public Use
  Company Number: 1713747-2015-999154

PATIENT
  Age: 65 Year
  Sex: Female
  Weight: 66.5 kg

DRUGS (16)
  1. CALCITRIOL. [Concomitant]
     Active Substance: CALCITRIOL
  2. COLACE [Concomitant]
     Active Substance: DOCUSATE SODIUM
  3. DELFLEX [Suspect]
     Active Substance: CALCIUM CHLORIDE\DEXTROSE MONOHYDRATE\MAGNESIUM CHLORIDE\SODIUM CHLORIDE\SODIUM LACTATE
     Indication: RENAL FAILURE
     Dosage: PERITONEAL DIALYSIS
  4. AMLODIPINE [Concomitant]
     Active Substance: AMLODIPINE BESYLATE
  5. POTASSIUM CHLORIDE. [Concomitant]
     Active Substance: POTASSIUM CHLORIDE
  6. LIBERTY CYCLER [Concomitant]
     Active Substance: DEVICE
  7. ZOCOR [Concomitant]
     Active Substance: SIMVASTATIN
  8. DIALYVITE [Concomitant]
     Active Substance: ASCORBIC ACID\BIOTIN\CALCIUM PANTOTHENATE\COBALAMIN\FOLIC ACID\NIACINAMIDE\PYRIDOXINE HYDROCHLORIDE\RIBOFLAVIN\THIAMINE MONONITRATE
  9. LISINOPRIL. [Concomitant]
     Active Substance: LISINOPRIL
  10. ATENOLOL. [Concomitant]
     Active Substance: ATENOLOL
  11. EPOGEN [Concomitant]
     Active Substance: ERYTHROPOIETIN
  12. GENTAMICIN. [Concomitant]
     Active Substance: GENTAMICIN
  13. HYDROCODONE [Concomitant]
     Active Substance: HYDROCODONE
  14. RENVELA [Concomitant]
     Active Substance: SEVELAMER CARBONATE
  15. BENEFIBER [Concomitant]
     Active Substance: STARCH, WHEAT
  16. LIBERTY CYCLER SET [Concomitant]
     Active Substance: DEVICE

REACTIONS (1)
  - Peritonitis [None]

NARRATIVE: CASE EVENT DATE: 20150417
